FAERS Safety Report 10359934 (Version 1)
Quarter: 2014Q3

REPORT INFORMATION
  Report Type: Spontaneous
  Country: US (occurrence: US)
  Receive Date: 20140804
  Receipt Date: 20140804
  Transmission Date: 20150326
  Serious: No
  Sender: FDA-Public Use
  Company Number: US-PFIZER INC-2014215664

PATIENT
  Age: 56 Year
  Sex: Female
  Weight: 73.92 kg

DRUGS (1)
  1. LYRICA [Suspect]
     Active Substance: PREGABALIN
     Indication: NERVE INJURY
     Dosage: 225 MG, (BY TAKING 75 MG IN DAY TIME AND 150 MG AT MIDNIGHT) UNK
     Route: 048
     Dates: start: 2012

REACTIONS (3)
  - Drug withdrawal syndrome [Unknown]
  - Pain [Unknown]
  - Discomfort [Unknown]
